APPROVED DRUG PRODUCT: ARIPIPRAZOLE
Active Ingredient: ARIPIPRAZOLE
Strength: 1MG/ML
Dosage Form/Route: SOLUTION;ORAL
Application: A215582 | Product #001 | TE Code: AA
Applicant: QUAGEN PHARMACEUTICALS LLC
Approved: Oct 22, 2025 | RLD: No | RS: No | Type: RX